FAERS Safety Report 9728270 (Version 1)
Quarter: 2013Q4

REPORT INFORMATION
  Report Type: Spontaneous
  Country: US (occurrence: None)
  Receive Date: 20131203
  Receipt Date: 20131203
  Transmission Date: 20140711
  Serious: No
  Sender: FDA-Public Use
  Company Number: None

PATIENT
  Age: 64 Year
  Sex: Male

DRUGS (4)
  1. EGRIFTA [Suspect]
     Indication: LIPODYSTROPHY ACQUIRED
     Route: 058
     Dates: start: 201108, end: 201306
  2. GLIPIZIDE [Concomitant]
  3. SERTRALINE [Concomitant]
  4. ACYCLOVIR [Concomitant]

REACTIONS (3)
  - Type 2 diabetes mellitus [None]
  - Condition aggravated [None]
  - Waist circumference increased [None]
